FAERS Safety Report 12240952 (Version 1)
Quarter: 2016Q2

REPORT INFORMATION
  Report Type: Spontaneous
  Country: CA (occurrence: CA)
  Receive Date: 20160406
  Receipt Date: 20160406
  Transmission Date: 20160815
  Serious: Yes (Other)
  Sender: FDA-Public Use
  Company Number: CA-JNJFOC-20160323124

PATIENT
  Age: 49 Year
  Sex: Female
  Weight: 58.97 kg

DRUGS (4)
  1. TYLENOL REGULAR STRENGTH [Suspect]
     Active Substance: ACETAMINOPHEN
     Indication: PAIN
     Dosage: DOSE 1 (UNIT UNSPECIFIED) 1 A DAY, AT NIGHT BEFORE BED
     Route: 048
  2. TYLENOL EXTRA STRENGTH [Suspect]
     Active Substance: ACETAMINOPHEN
     Indication: PAIN
     Dosage: DOSE 1 (UNIT UNSPECIFIED) 1 A DAY, AT NIGHT BEFORE BED
     Route: 048
  3. ESTROGEN [Concomitant]
     Active Substance: ESTRONE\SUS SCROFA OVARY
     Indication: REPRODUCTIVE TRACT DISORDER
     Dosage: FROM 23 YEARS
     Route: 065
  4. ELTROXIN [Concomitant]
     Active Substance: LEVOTHYROXINE
     Indication: THYROID DISORDER
     Dosage: TAKES EVERY 5 DAYS, 50MG PILL THAT SHE TEAR INTO CORNERS.
     Route: 065
     Dates: start: 2011

REACTIONS (5)
  - Fatigue [Unknown]
  - Somnolence [Recovered/Resolved]
  - Renal neoplasm [Not Recovered/Not Resolved]
  - Blood urine present [Not Recovered/Not Resolved]
  - Diarrhoea [Unknown]
